FAERS Safety Report 7625926-7 (Version None)
Quarter: 2011Q3

REPORT INFORMATION
  Report Type: 
  Country: None (occurrence: None)
  Receive Date: 20110721
  Receipt Date: 20110721
  Transmission Date: 20111222
  Serious: Yes (Disabling)
  Sender: FDA-Public Use
  Company Number: None

PATIENT
  Age: 44 Year
  Sex: Female
  Weight: 102.51 kg

DRUGS (2)
  1. AVASTIN [Suspect]
     Indication: OLIGODENDROGLIOMA
     Dosage: 1000 MG
     Route: 041
     Dates: start: 20110622, end: 20110706
  2. IRINOTECAN HCL [Concomitant]
     Route: 017

REACTIONS (2)
  - SUBCLAVIAN VEIN THROMBOSIS [None]
  - VENOUS OCCLUSION [None]
